FAERS Safety Report 13006430 (Version 1)
Quarter: 2016Q4

REPORT INFORMATION
  Report Type: Spontaneous
  Country: US (occurrence: US)
  Receive Date: 20161206
  Receipt Date: 20161206
  Transmission Date: 20170207
  Serious: Yes (Life-Threatening, Other)
  Sender: FDA-Public Use
  Company Number: None

PATIENT
  Age: 61 Year
  Sex: Female
  Weight: 60.7 kg

DRUGS (5)
  1. AMBIEN [Concomitant]
     Active Substance: ZOLPIDEM TARTRATE
  2. CYMBALTA [Suspect]
     Active Substance: DULOXETINE HYDROCHLORIDE
     Indication: DEPRESSION
     Route: 048
  3. LEMTRADA [Concomitant]
     Active Substance: ALEMTUZUMAB
  4. PROMETRIUM [Concomitant]
     Active Substance: PROGESTERONE
  5. ESTRADIOL VAGINAL RING [Concomitant]

REACTIONS (4)
  - Depression [None]
  - Incorrect dose administered [None]
  - Suicidal ideation [None]
  - Product formulation issue [None]

NARRATIVE: CASE EVENT DATE: 20161128
